FAERS Safety Report 19475884 (Version 1)
Quarter: 2021Q2

REPORT INFORMATION
  Report Type: Spontaneous
  Country: AU (occurrence: AU)
  Receive Date: 20210630
  Receipt Date: 20210630
  Transmission Date: 20210717
  Serious: Yes (Other)
  Sender: FDA-Public Use
  Company Number: AU-PFIZER INC-2021764407

PATIENT
  Age: 64 Year
  Sex: Female

DRUGS (9)
  1. METHYLDOPA. [Suspect]
     Active Substance: METHYLDOPA
     Dosage: 125 UNK
  2. ISOSORBIDE DINITRATE. [Suspect]
     Active Substance: ISOSORBIDE DINITRATE
     Indication: HYPERTENSION
     Dosage: 10 MG, 4X/DAY
  3. AMILORIDE [Suspect]
     Active Substance: AMILORIDE
     Indication: HYPERTENSION
     Dosage: 5 MG, IN THE MORNING
  4. PRAZOSIN HCL [Suspect]
     Active Substance: PRAZOSIN HYDROCHLORIDE
     Indication: HYPERTENSION
     Dosage: 1 MG, 2X/DAY
     Route: 048
  5. WARFARIN [Suspect]
     Active Substance: WARFARIN
     Indication: HYPERTENSION
     Dosage: 5 MG, 1X/DAY (A DAY)
  6. ISOSORBIDE DINITRATE. [Suspect]
     Active Substance: ISOSORBIDE DINITRATE
     Dosage: 10 MG, 3X/DAY
  7. AMITRIPTYLINE [Suspect]
     Active Substance: AMITRIPTYLINE
     Indication: HYPERTENSION
     Dosage: 75 MG , AT NIGHT
  8. FRUSEMIDE [FUROSEMIDE] [Suspect]
     Active Substance: FUROSEMIDE
     Indication: HYPERTENSION
     Dosage: 40 MG, IN THE MORNING
  9. METHYLDOPA. [Suspect]
     Active Substance: METHYLDOPA
     Indication: HYPERTENSION
     Dosage: 500 MG, 2X/DAY

REACTIONS (1)
  - Cerebral ischaemia [Unknown]
